FAERS Safety Report 17468949 (Version 1)
Quarter: 2020Q1

REPORT INFORMATION
  Report Type: Report from Study
  Country: US (occurrence: US)
  Receive Date: 20200227
  Receipt Date: 20200227
  Transmission Date: 20200409
  Serious: No
  Sender: FDA-Public Use
  Company Number: US-AEGERION PHARMACEUTICAL, INC-AEGR004574

PATIENT
  Age: 38 Year
  Sex: Female
  Weight: 57.6 kg

DRUGS (2)
  1. MYALEPT [Suspect]
     Active Substance: METRELEPTIN
     Indication: CONGENITAL GENERALISED LIPODYSTROPHY
     Dosage: 5 MG, QD
     Route: 058
  2. MYALEPT [Suspect]
     Active Substance: METRELEPTIN
     Dosage: 2.5 MG, QD
     Route: 058

REACTIONS (2)
  - Bronchitis [Unknown]
  - Blood glucose increased [Unknown]

NARRATIVE: CASE EVENT DATE: 201911
